FAERS Safety Report 11598691 (Version 1)
Quarter: 2015Q4

REPORT INFORMATION
  Report Type: Spontaneous
  Country: CN (occurrence: CN)
  Receive Date: 20151006
  Receipt Date: 20151006
  Transmission Date: 20160304
  Serious: Yes (Hospitalization)
  Sender: FDA-Public Use
  Company Number: CN-GLAXOSMITHKLINE-CN2015GSK139346

PATIENT
  Age: 4 Year
  Sex: Male
  Weight: 27 kg

DRUGS (2)
  1. SINGULAIR [Suspect]
     Active Substance: MONTELUKAST SODIUM
     Indication: ASTHMA
     Dosage: UNK
     Route: 048
     Dates: start: 201501
  2. FLIXOTIDE INHALER [Suspect]
     Active Substance: FLUTICASONE PROPIONATE
     Indication: ASTHMA
     Dosage: 1 DF, BID
     Route: 055
     Dates: start: 201501

REACTIONS (3)
  - Nasopharyngitis [Unknown]
  - Overdose [Unknown]
  - Asthma [Unknown]

NARRATIVE: CASE EVENT DATE: 201501
